FAERS Safety Report 16971744 (Version 1)
Quarter: 2019Q4

REPORT INFORMATION
  Report Type: Spontaneous
  Country: US (occurrence: US)
  Receive Date: 20191029
  Receipt Date: 20191029
  Transmission Date: 20200122
  Serious: No
  Sender: FDA-Public Use
  Company Number: US-SA-2019SA297728

PATIENT
  Sex: Female

DRUGS (1)
  1. KEVZARA [Suspect]
     Active Substance: SARILUMAB
     Indication: ILL-DEFINED DISORDER
     Dosage: 200 MG/1.14 ML
     Route: 058
     Dates: start: 20190716

REACTIONS (1)
  - Drug interaction [Unknown]
